FAERS Safety Report 4795712-4 (Version None)
Quarter: 2005Q4

REPORT INFORMATION
  Report Type: 
  Country: None (occurrence: None)
  Receive Date: 20051006
  Receipt Date: 20051006
  Transmission Date: 20060501
  Serious: Yes (Life-Threatening, Disabling, Other)
  Sender: FDA-Public Use
  Company Number: None

PATIENT

DRUGS (2)
  1. PREDNISONE [Suspect]
     Indication: ASTHMA
     Dosage: BUCCAL
     Route: 002
  2. METILPREDNISOLONE MEDOL.DEPOMEDROL,SOLUM [Suspect]
     Indication: ARTHRITIS
     Dosage: BUCCAL
     Route: 002

REACTIONS (3)
  - GROWTH RETARDATION [None]
  - OBESITY [None]
  - SKIN STRIAE [None]
